FAERS Safety Report 5008892-2 (Version None)
Quarter: 2006Q2

REPORT INFORMATION
  Report Type: 
  Country: None (occurrence: None)
  Receive Date: 20060518
  Receipt Date: 20060510
  Transmission Date: 20061013
  Serious: Yes (Death, Other)
  Sender: FDA-Public Use
  Company Number: 2006-142490-NL

PATIENT
  Age: 31 Year
  Sex: Female

DRUGS (3)
  1. PUREGON [Suspect]
     Indication: INFERTILITY
     Dosage: 150 IU DAILY
     Dates: start: 20060317
  2. PUREGON [Suspect]
     Indication: INFERTILITY
     Dosage: 75 IU DAILY
  3. ORGALUTRAN [Suspect]
     Dosage: 3 DF DAILY

REACTIONS (10)
  - ABDOMINAL DISTENSION [None]
  - ABDOMINAL TENDERNESS [None]
  - ASTHENIA [None]
  - BRAIN HERNIATION [None]
  - BRAIN OEDEMA [None]
  - CEREBRAL ARTERY OCCLUSION [None]
  - CEREBROVASCULAR ACCIDENT [None]
  - DISCOMFORT [None]
  - FATIGUE [None]
  - OVARIAN ENLARGEMENT [None]
